FAERS Safety Report 9890812 (Version 1)
Quarter: 2014Q1

REPORT INFORMATION
  Report Type: Spontaneous
  Country: US (occurrence: US)
  Receive Date: 20140212
  Receipt Date: 20140212
  Transmission Date: 20141002
  Serious: Yes (Other)
  Sender: FDA-Public Use
  Company Number: US-PURDUE-USA-2014-0111006

PATIENT
  Sex: Female

DRUGS (3)
  1. OXYCONTIN (NDA 22-272) [Suspect]
     Indication: PAIN
     Dosage: UNK
     Route: 048
  2. PERCOCET                           /00446701/ [Concomitant]
  3. CATAPRES                           /00171101/ [Concomitant]

REACTIONS (3)
  - Gastric banding [Unknown]
  - Malabsorption [Unknown]
  - Inadequate analgesia [Unknown]
